FAERS Safety Report 12405664 (Version 1)
Quarter: 2016Q2

REPORT INFORMATION
  Report Type: Spontaneous
  Country: US (occurrence: None)
  Receive Date: 20160525
  Receipt Date: 20160525
  Transmission Date: 20160815
  Serious: No
  Sender: FDA-Public Use
  Company Number: None

PATIENT
  Age: 61 Year
  Sex: Male

DRUGS (4)
  1. IBU [Concomitant]
     Active Substance: IBUPROFEN
  2. HARVONI [Suspect]
     Active Substance: LEDIPASVIR\SOFOSBUVIR
     Indication: HEPATITIS C
     Dosage: HARVONI 90-400MG?DAILY?PO
     Route: 048
     Dates: start: 20160429
  3. OXYCODONE [Concomitant]
     Active Substance: OXYCODONE
  4. LISINOPRIL. [Concomitant]
     Active Substance: LISINOPRIL

REACTIONS (3)
  - Dry mouth [None]
  - Restlessness [None]
  - Fatigue [None]

NARRATIVE: CASE EVENT DATE: 201605
